FAERS Safety Report 4662556-3 (Version None)
Quarter: 2005Q2

REPORT INFORMATION
  Report Type: 
  Country: None (occurrence: None)
  Receive Date: 20050512
  Receipt Date: 20050426
  Transmission Date: 20051028
  Serious: Yes (Death, Other)
  Sender: FDA-Public Use
  Company Number: AU_050308406

PATIENT
  Age: 34 Year
  Sex: Male
  Weight: 75 kg

DRUGS (8)
  1. XIGRIS [Suspect]
     Indication: SEPSIS
     Dates: start: 20050214, end: 20050215
  2. HYDROCORTISONE [Concomitant]
  3. MEROPENEM [Concomitant]
  4. AMPHOTERICIN B [Concomitant]
  5. VANCOMYCIN [Concomitant]
  6. G-CSF [Concomitant]
  7. VITAMIN K [Concomitant]
  8. INTRAGAM (IMMUNOGLOBULIN HUMAN NORMAL) [Concomitant]

REACTIONS (5)
  - ASPERGILLOSIS [None]
  - CONVULSION [None]
  - GENERAL PHYSICAL HEALTH DETERIORATION [None]
  - LOSS OF CONSCIOUSNESS [None]
  - SYSTEMIC MYCOSIS [None]
